FAERS Safety Report 19945571 (Version 3)
Quarter: 2021Q4

REPORT INFORMATION
  Report Type: Report from Study
  Country: US (occurrence: US)
  Receive Date: 20211012
  Receipt Date: 20211115
  Transmission Date: 20220303
  Serious: Yes (Hospitalization)
  Sender: FDA-Public Use
  Company Number: US-DSRSG-DS8201AU206_10102001_000001

PATIENT
  Age: 65 Year
  Sex: Female
  Weight: 51 kg

DRUGS (13)
  1. TRASTUZUMAB DERUXTECAN [Suspect]
     Active Substance: TRASTUZUMAB DERUXTECAN
     Indication: HER2 mutant non-small cell lung cancer
     Dosage: 6.4 MG/KG, ONCE EVERY 3 WK
     Route: 042
     Dates: start: 20210921, end: 20210921
  2. FOLIC ACID [Concomitant]
     Active Substance: FOLIC ACID
     Indication: Anaemia
     Dosage: 1 OTHER
     Route: 048
     Dates: start: 20210224, end: 20211008
  3. POTASSIUM CHLORIDE [Concomitant]
     Active Substance: POTASSIUM CHLORIDE
     Indication: Hypokalaemia
     Dosage: 25 MILLIEQUIVALENT
     Route: 048
     Dates: start: 20210709, end: 20211008
  4. POTASSIUM CHLORIDE [Concomitant]
     Active Substance: POTASSIUM CHLORIDE
     Dosage: 10 MILLIEQUIVALENT
     Route: 042
     Dates: start: 20211004, end: 20211004
  5. ZOFRAN [ONDANSETRON HYDROCHLORIDE DIHYDRATE] [Concomitant]
     Indication: Nausea
     Dosage: 8 OTHER
     Route: 048
     Dates: start: 20210224, end: 20211008
  6. ZOFRAN [ONDANSETRON HYDROCHLORIDE DIHYDRATE] [Concomitant]
     Dosage: 4 OTHER
     Route: 042
     Dates: start: 20211004, end: 20211006
  7. SODIUM CHLORIDE [Concomitant]
     Active Substance: SODIUM CHLORIDE
     Dosage: 1000 OTHER
     Route: 042
     Dates: start: 20211004, end: 20211004
  8. SODIUM CHLORIDE [Concomitant]
     Active Substance: SODIUM CHLORIDE
     Dosage: 100 MILLILITERS PER HOUR
     Route: 042
     Dates: start: 20211004, end: 20211005
  9. LIDOCAINE [Concomitant]
     Active Substance: LIDOCAINE
     Indication: Candida infection
     Dosage: 240 OTHER
     Route: 048
     Dates: start: 20210430, end: 20211008
  10. EMLA [Concomitant]
     Active Substance: LIDOCAINE\PRILOCAINE
     Dosage: 1 APPLICATION
     Route: 061
     Dates: start: 20210305, end: 20211008
  11. ROXICODONE [Concomitant]
     Active Substance: OXYCODONE HYDROCHLORIDE
     Indication: Pain
     Dosage: 5 OTHER
     Route: 048
     Dates: start: 20210730, end: 20211008
  12. OMEPRAZOLE [Concomitant]
     Active Substance: OMEPRAZOLE
     Indication: Gastrooesophageal reflux disease
     Dosage: 40 OTHER
     Route: 048
     Dates: start: 20210730, end: 20211008
  13. PHENERGAN [CEPHAELIS SPP. FLUID EXTRACT;CHLOROFORM;CITRIC ACID;DEXTROM [Concomitant]
     Indication: Nausea
     Dosage: 25 OTHER
     Route: 048
     Dates: start: 20210224, end: 20211008

REACTIONS (1)
  - Dehydration [Not Recovered/Not Resolved]

NARRATIVE: CASE EVENT DATE: 20211004
